FAERS Safety Report 7563401-9 (Version None)
Quarter: 2011Q2

REPORT INFORMATION
  Report Type: 
  Country: None (occurrence: None)
  Receive Date: 20110622
  Receipt Date: 20110620
  Transmission Date: 20111010
  Serious: Yes (Hospitalization, Disabling)
  Sender: FDA-Public Use
  Company Number: B0068891A

PATIENT
  Age: 52 Year
  Sex: Female

DRUGS (4)
  1. MELPHALAN HYDROCHLORIDE [Suspect]
  2. CYCLOPHOSPHAMIDE [Concomitant]
     Dosage: 300MGM2 PER DAY
     Route: 042
  3. PLATELETS [Concomitant]
  4. METHYLPREDNISOLONE [Concomitant]
     Dosage: 1.5G PER DAY
     Route: 042

REACTIONS (12)
  - SOMNOLENCE [None]
  - GRIMACING [None]
  - ENCEPHALOPATHY [None]
  - MUCOSAL INFLAMMATION [None]
  - LOSS OF CONSCIOUSNESS [None]
  - CHEST PAIN [None]
  - ENTEROCOCCAL SEPSIS [None]
  - CONVULSION [None]
  - COMA [None]
  - DIARRHOEA HAEMORRHAGIC [None]
  - DYSPHAGIA [None]
  - STAPHYLOCOCCAL SEPSIS [None]
